FAERS Safety Report 25806031 (Version 2)
Quarter: 2025Q4

REPORT INFORMATION
  Report Type: Spontaneous
  Country: US (occurrence: US)
  Receive Date: 20250916
  Receipt Date: 20251117
  Transmission Date: 20260118
  Serious: No
  Sender: HETERO
  Company Number: US-HETERO-HET2025US05322

PATIENT
  Age: 77 Year
  Sex: Female

DRUGS (1)
  1. ATOVAQUONE [Suspect]
     Active Substance: ATOVAQUONE
     Indication: Babesiosis
     Dosage: 5 MILLILITER, BID
     Route: 048

REACTIONS (5)
  - Dizziness [Unknown]
  - Diplopia [Unknown]
  - Off label use [Unknown]
  - Product packaging quantity issue [Unknown]
  - Drug ineffective [Unknown]
